FAERS Safety Report 26180361 (Version 1)
Quarter: 2025Q4

REPORT INFORMATION
  Report Type: Spontaneous
  Country: US (occurrence: US)
  Receive Date: 20251219
  Receipt Date: 20251219
  Transmission Date: 20260117
  Serious: No
  Sender: NOVARTIS
  Company Number: US-002147023-NVSC2025US191632

PATIENT
  Sex: Female

DRUGS (1)
  1. RHAPSIDO [Suspect]
     Active Substance: REMIBRUTINIB
     Indication: Product used for unknown indication
     Dosage: UNK
     Route: 048

REACTIONS (6)
  - Hypoacusis [Unknown]
  - Confusional state [Unknown]
  - Dysphonia [Unknown]
  - Cough [Unknown]
  - Amnesia [Unknown]
  - Product dose omission issue [Unknown]
